FAERS Safety Report 14521562 (Version 2)
Quarter: 2018Q1

REPORT INFORMATION
  Report Type: Spontaneous
  Country: BR (occurrence: BR)
  Receive Date: 20180212
  Receipt Date: 20180216
  Transmission Date: 20180509
  Serious: Yes (Death, Hospitalization, Other)
  Sender: FDA-Public Use
  Company Number: BR-PFIZER INC-2018049030

PATIENT
  Age: 40 Year
  Sex: Male

DRUGS (4)
  1. ZITROMAX [Suspect]
     Active Substance: AZITHROMYCIN
     Indication: PNEUMONIA
     Dosage: UNK UNK, 2X/DAY (12/12H)
     Route: 042
     Dates: start: 20180129, end: 20180130
  2. RANITIDINE. [Concomitant]
     Active Substance: RANITIDINE
     Dosage: UNK
  3. CARVEDILOL. [Concomitant]
     Active Substance: CARVEDILOL
     Dosage: UNK
  4. ZITROMAX [Suspect]
     Active Substance: AZITHROMYCIN
     Indication: PLEURAL EFFUSION

REACTIONS (6)
  - Headache [Unknown]
  - Hyperhidrosis [Unknown]
  - Dizziness [Unknown]
  - Hypotension [Unknown]
  - Malaise [Unknown]
  - Abdominal pain upper [Unknown]

NARRATIVE: CASE EVENT DATE: 2018
